FAERS Safety Report 17153522 (Version 2)
Quarter: 2019Q4

REPORT INFORMATION
  Report Type: Spontaneous
  Country: DE (occurrence: DE)
  Receive Date: 20191213
  Receipt Date: 20191217
  Transmission Date: 20200122
  Serious: Yes (Hospitalization)
  Sender: FDA-Public Use
  Company Number: DE-MYLANLABS-2019M1122737

PATIENT
  Age: 80 Year
  Sex: Female

DRUGS (17)
  1. TORASEMID [Concomitant]
     Active Substance: TORSEMIDE
     Dosage: 10 MILLIGRAM (10 MG, 1-1-0-0)
  2. LEVOTHYROXIN [Concomitant]
     Active Substance: LEVOTHYROXINE
     Dosage: 100 MICROGRAM (100 ?G, 1-0-0-0)
  3. REKAWAN [Concomitant]
     Active Substance: POTASSIUM CHLORIDE
     Dosage: 1000 MILLIGRAM (1000 MG, 1-0-0-0)
  4. ATORVASTATIN [Concomitant]
     Active Substance: ATORVASTATIN
     Dosage: 20 MILLIGRAM (20 MG, 0-0-1-0)
  5. DIGITOXIN [Concomitant]
     Active Substance: DIGITOXIN
     Dosage: 0.07 MILLIGRAM (0.07 MG, 0-1-0-01)
  6. DULOXETINE. [Suspect]
     Active Substance: DULOXETINE
     Indication: PRODUCT USED FOR UNKNOWN INDICATION
     Dosage: 90 MILLIGRAM (90 MG, 1-0-0-0 )
  7. QUETIAPINE. [Suspect]
     Active Substance: QUETIAPINE
     Dosage: 25 MILLIGRAM (25 MG, 0-0-0-1)
  8. LOSARTAN AND HYDROCHLOROTHIAZIDE [Concomitant]
     Active Substance: HYDROCHLOROTHIAZIDE\LOSARTAN POTASSIUM
     Dosage: UNK (50|12.5 MG, 1-0-0-0)
  9. OMEPRAZOL                          /00661201/ [Concomitant]
     Active Substance: OMEPRAZOLE
     Dosage: 20 UNK (20 MG, BEDARF)
  10. HYDROMORPHONE [Suspect]
     Active Substance: HYDROMORPHONE
     Indication: PRODUCT USED FOR UNKNOWN INDICATION
     Dosage: 8 MILLIGRAM (8 MG, 1-0-1-0)
  11. METOPROLOL. [Concomitant]
     Active Substance: METOPROLOL
     Dosage: 47.5 MILLIGRAM (47.5 MG, 0.5-0-0-0)
  12. ARNICA D 12 [Concomitant]
     Dosage: UNK (5-5-5-0, GLOBULI)
  13. MOVICOL [Concomitant]
     Active Substance: POLYETHYLENE GLYCOL 3350\POTASSIUM CHLORIDE\SODIUM BICARBONATE\SODIUM CHLORIDE
     Dosage: UNK (1-0-0-0)
  14. OMEPRAZOL                          /00661201/ [Concomitant]
     Active Substance: OMEPRAZOLE
     Dosage: 20 MILLIGRAM (20 MG, 0-0-1-0)
  15. QUETIAPINE. [Suspect]
     Active Substance: QUETIAPINE
     Indication: PRODUCT USED FOR UNKNOWN INDICATION
     Dosage: 50 MILLIGRAM (50 MG, 0-0-0-1)
  16. PHENPROCOUMON [Concomitant]
     Active Substance: PHENPROCOUMON
     Dosage: 3 MILLIGRAM (3 MG, SEIT 22.12.2017 PAUSIERT)
  17. METAMIZOL                          /06276701/ [Concomitant]
     Active Substance: METAMIZOLE
     Dosage: 500 MILLIGRAM (500 MG, 1-1-1-0)

REACTIONS (2)
  - Disorientation [Unknown]
  - Somnolence [Unknown]

NARRATIVE: CASE EVENT DATE: 20180101
